FAERS Safety Report 5298260-0 (Version None)
Quarter: 2007Q1

REPORT INFORMATION
  Report Type: 
  Country: None (occurrence: None)
  Receive Date: 20070205
  Receipt Date: 20060418
  Transmission Date: 20070707
  Serious: Yes (Life-Threatening, Other)
  Sender: FDA-Public Use
  Company Number: US200603000234

PATIENT
  Age: 59 Year
  Sex: Female
  Weight: 71.7 kg

DRUGS (1)
  1. EVISTA [Suspect]
     Indication: OSTEOPOROSIS
     Dosage: ORAL
     Route: 048
     Dates: start: 20030101, end: 20060101

REACTIONS (2)
  - DEEP VEIN THROMBOSIS [None]
  - OEDEMA PERIPHERAL [None]
